FAERS Safety Report 5557633-9 (Version None)
Quarter: 2007Q4

REPORT INFORMATION
  Report Type: 
  Country: None (occurrence: None)
  Receive Date: 20071214
  Receipt Date: 20071211
  Transmission Date: 20080405
  Serious: Yes (Life-Threatening, Hospitalization)
  Sender: FDA-Public Use
  Company Number: B0499244A

PATIENT
  Sex: Female

DRUGS (1)
  1. AMOXYCILLIN SODIUM + CLAVULANIC ACID [Suspect]
     Indication: PROPHYLAXIS
     Dosage: 1000MG PER DAY
     Route: 042
     Dates: start: 20070629, end: 20070629

REACTIONS (2)
  - CONVULSION [None]
  - RESPIRATORY ARREST [None]
